FAERS Safety Report 11695585 (Version 1)
Quarter: 2015Q4

REPORT INFORMATION
  Report Type: Spontaneous
  Country: US (occurrence: US)
  Receive Date: 20151104
  Receipt Date: 20151104
  Transmission Date: 20160304
  Serious: Yes (Death)
  Sender: FDA-Public Use
  Company Number: US-ROCHE-1655249

PATIENT
  Sex: Male

DRUGS (3)
  1. HEPARIN LOCK SOLUTION [Concomitant]
     Route: 065
  2. CEFTRIAXONE. [Concomitant]
     Active Substance: CEFTRIAXONE
     Route: 065
  3. RITUXAN [Suspect]
     Active Substance: RITUXIMAB
     Indication: NON-HODGKIN^S LYMPHOMA
     Dosage: 100 MG 10 ML SDV INJECTION
     Route: 065
     Dates: start: 20150302

REACTIONS (1)
  - Death [Fatal]
